FAERS Safety Report 14571235 (Version 1)
Quarter: 2018Q1

REPORT INFORMATION
  Report Type: Spontaneous
  Country: DE (occurrence: DE)
  Receive Date: 20180226
  Receipt Date: 20180226
  Transmission Date: 20180509
  Serious: Yes (Other)
  Sender: FDA-Public Use
  Company Number: PHHY2018DE028632

PATIENT
  Sex: Male

DRUGS (1)
  1. EVEROLIMUS. [Suspect]
     Active Substance: EVEROLIMUS
     Indication: METASTATIC RENAL CELL CARCINOMA
     Route: 065

REACTIONS (9)
  - Sepsis [Unknown]
  - Aspartate aminotransferase increased [Unknown]
  - Pneumonia [Unknown]
  - Alanine aminotransferase increased [Unknown]
  - Mucosal inflammation [Unknown]
  - Cardiac failure [Unknown]
  - Gamma-glutamyltransferase increased [Unknown]
  - Malignant neoplasm progression [Unknown]
  - Metastatic renal cell carcinoma [Unknown]
